FAERS Safety Report 7387693-4 (Version None)
Quarter: 2011Q1

REPORT INFORMATION
  Report Type: 
  Country: None (occurrence: None)
  Receive Date: 20110331
  Receipt Date: 20110217
  Transmission Date: 20110831
  Serious: Yes (Other)
  Sender: FDA-Public Use
  Company Number: US-BAYER-201028847NA

PATIENT
  Sex: Female
  Weight: 75 kg

DRUGS (16)
  1. YASMIN [Suspect]
     Route: 048
     Dates: start: 20050401, end: 20070302
  2. XANAX [Concomitant]
     Indication: ANXIETY
  3. MULTI-VITAMINS [Concomitant]
     Indication: MITRAL VALVE PROLAPSE
  4. YAZ [Suspect]
     Indication: ACNE
     Route: 048
     Dates: start: 20070525, end: 20071209
  5. YAZ [Suspect]
     Route: 048
     Dates: start: 20090417, end: 20090902
  6. METFORMIN HCL [Concomitant]
     Indication: POLYCYSTIC OVARIES
  7. UNCODEABLE ^UNCLASSIFIABLE^ [Concomitant]
  8. YAZ [Suspect]
     Route: 048
     Dates: start: 20080107, end: 20081012
  9. COPAXONE [Concomitant]
     Indication: MULTIPLE SCLEROSIS
  10. BACLOFEN [Concomitant]
     Indication: MULTIPLE SCLEROSIS
  11. IBUPROFEN [Concomitant]
     Indication: PRODUCT USED FOR UNKNOWN INDICATION
  12. ASPIRIN [Concomitant]
     Indication: THROMBOSIS PROPHYLAXIS
  13. PROVIGIL [Concomitant]
     Indication: MULTIPLE SCLEROSIS
  14. TIZANIDINE HCL [Concomitant]
  15. AMANTADINE HCL [Concomitant]
     Indication: MULTIPLE SCLEROSIS
  16. ASPIRIN [Concomitant]
     Indication: PAIN
     Route: 048
     Dates: start: 19991130

REACTIONS (5)
  - POST THROMBOTIC SYNDROME [None]
  - DEEP VEIN THROMBOSIS [None]
  - HYPOAESTHESIA [None]
  - PAIN IN EXTREMITY [None]
  - OEDEMA PERIPHERAL [None]
